FAERS Safety Report 21030843 (Version 1)
Quarter: 2022Q3

REPORT INFORMATION
  Report Type: Spontaneous
  Country: JP (occurrence: JP)
  Receive Date: 20220701
  Receipt Date: 20220701
  Transmission Date: 20221026
  Serious: Yes (Other)
  Sender: FDA-Public Use
  Company Number: JP-NBI-J202211000BIPI

PATIENT
  Age: 76 Year
  Sex: Male

DRUGS (1)
  1. OFEV [Suspect]
     Active Substance: NINTEDANIB
     Indication: Idiopathic pulmonary fibrosis
     Route: 048

REACTIONS (5)
  - Idiopathic pulmonary fibrosis [Unknown]
  - Dyspnoea exertional [Unknown]
  - Pneumonia [Unknown]
  - Blood pressure decreased [Unknown]
  - Syncope [Unknown]
